FAERS Safety Report 4795762-8 (Version None)
Quarter: 2005Q4

REPORT INFORMATION
  Report Type: 
  Country: None (occurrence: None)
  Receive Date: 20051012
  Receipt Date: 20050930
  Transmission Date: 20060501
  Serious: Yes (Hospitalization)
  Sender: FDA-Public Use
  Company Number: PL-BRISTOL-MYERS SQUIBB COMPANY-13136221

PATIENT
  Age: 68 Year
  Sex: Female

DRUGS (10)
  1. GLUCOPHAGE [Suspect]
     Indication: DIABETES MELLITUS NON-INSULIN-DEPENDENT
     Route: 048
     Dates: start: 20020117
  2. ACARD [Suspect]
     Dates: start: 19990919
  3. DIAPREL [Concomitant]
     Dates: start: 19970101
  4. ENARENAL [Concomitant]
     Dates: start: 19970101
  5. ATENOLOL [Concomitant]
     Dates: start: 20000906
  6. EUTHYROX [Concomitant]
     Dates: start: 20000101
  7. BETASERC [Concomitant]
  8. LETROX [Concomitant]
     Dates: start: 20000101
  9. VITRUM [Concomitant]
     Dates: start: 19990101
  10. SORTIS [Concomitant]
     Dates: start: 20020213

REACTIONS (2)
  - ASTHENIA [None]
  - UPPER GASTROINTESTINAL HAEMORRHAGE [None]
